FAERS Safety Report 19144875 (Version 1)
Quarter: 2021Q2

REPORT INFORMATION
  Report Type: Spontaneous
  Country: US (occurrence: US)
  Receive Date: 20210416
  Receipt Date: 20210416
  Transmission Date: 20210717
  Serious: No
  Sender: FDA-Public Use
  Company Number: US-ASTRAZENECA-2021A280429

PATIENT
  Age: 33 Year
  Sex: Female
  Weight: 56.7 kg

DRUGS (3)
  1. PRILOSEC [Suspect]
     Active Substance: OMEPRAZOLE MAGNESIUM
     Dosage: UNKNOWN
     Route: 065
  2. NORTRIPTYLINE [Suspect]
     Active Substance: NORTRIPTYLINE
     Dosage: UNKNOWN
     Route: 065
  3. XELJANZ XR [Suspect]
     Active Substance: TOFACITINIB CITRATE
     Indication: RHEUMATOID ARTHRITIS
     Dosage: 11MG TABLET ONCE A DAY BY MOUTH
     Route: 048
     Dates: start: 202101

REACTIONS (7)
  - Gastrooesophageal reflux disease [Unknown]
  - Headache [Unknown]
  - Pain [Unknown]
  - SARS-CoV-2 test negative [Unknown]
  - Oropharyngeal pain [Unknown]
  - Product dose omission in error [Unknown]
  - Pharyngeal swelling [Unknown]

NARRATIVE: CASE EVENT DATE: 2020
